FAERS Safety Report 9912164 (Version 1)
Quarter: 2014Q1

REPORT INFORMATION
  Report Type: Report from Study
  Country: US (occurrence: US)
  Receive Date: 20140220
  Receipt Date: 20140220
  Transmission Date: 20141002
  Serious: Yes (Hospitalization, Other)
  Sender: FDA-Public Use
  Company Number: US-BRISTOL-MYERS SQUIBB COMPANY-20204574

PATIENT
  Age: 60 Year
  Sex: Male
  Weight: 90.25 kg

DRUGS (8)
  1. ATAZANAVIR [Suspect]
     Indication: HIV INFECTION
     Route: 048
     Dates: start: 20120323
  2. COBICISTAT [Suspect]
     Indication: HIV INFECTION
     Route: 048
     Dates: start: 20120323
  3. TRUVADA [Suspect]
     Indication: HIV INFECTION
     Route: 048
     Dates: start: 20120323
  4. TRAZODONE HCL [Concomitant]
     Dates: start: 20111209
  5. KLONOPIN [Concomitant]
     Dates: start: 20120201
  6. TRICOR [Concomitant]
     Dates: start: 201008
  7. SUBOXONE [Concomitant]
     Dates: start: 201008
  8. TESTOSTERONE CIPIONATE [Concomitant]

REACTIONS (1)
  - Coronary artery stenosis [Recovered/Resolved]
